FAERS Safety Report 7723927-1 (Version None)
Quarter: 2011Q3

REPORT INFORMATION
  Report Type: 
  Country: None (occurrence: None)
  Receive Date: 20110901
  Receipt Date: 20110818
  Transmission Date: 20111222
  Serious: Yes (Hospitalization)
  Sender: FDA-Public Use
  Company Number: US-ELI_LILLY_AND_COMPANY-US201010005912

PATIENT
  Sex: Male

DRUGS (4)
  1. FORTEO [Suspect]
     Indication: OSTEOPOROSIS
     Dosage: 20 UG, DAILY (1/D)
     Dates: start: 20100501
  2. FORTEO [Suspect]
     Dosage: 20 UG, DAILY (1/D)
  3. VITAMIN TAB [Concomitant]
  4. FORTEO [Suspect]
     Dosage: 20 UG, QD
     Dates: end: 20110701

REACTIONS (14)
  - APPETITE DISORDER [None]
  - HIP FRACTURE [None]
  - DECREASED APPETITE [None]
  - CONSTIPATION [None]
  - MOBILITY DECREASED [None]
  - MUSCLE ATROPHY [None]
  - FATIGUE [None]
  - AGITATION [None]
  - ASTHENIA [None]
  - FALL [None]
  - PERSONALITY CHANGE [None]
  - DECREASED ACTIVITY [None]
  - DEPRESSED MOOD [None]
  - WEIGHT DECREASED [None]
